FAERS Safety Report 4969943-4 (Version None)
Quarter: 2006Q1

REPORT INFORMATION
  Report Type: 
  Country: None (occurrence: None)
  Receive Date: 20060202
  Receipt Date: 20050608
  Transmission Date: 20060701
  Serious: Yes (Life-Threatening)
  Sender: FDA-Public Use
  Company Number: PHEH2005US03051

PATIENT
  Age: 52 Year
  Sex: Female

DRUGS (2)
  1. RITALIN [Suspect]
     Indication: ATTENTION DEFICIT/HYPERACTIVITY DISORDER
     Dosage: 5 MG, TID, ORAL
     Route: 048
     Dates: start: 19960101
  2. RITALIN [Suspect]
     Indication: PSYCHOMOTOR HYPERACTIVITY
     Dosage: 5 MG, TID, ORAL
     Route: 048
     Dates: start: 19960101

REACTIONS (6)
  - DRUG INEFFECTIVE [None]
  - FEELING JITTERY [None]
  - IMPULSIVE BEHAVIOUR [None]
  - INCREASED APPETITE [None]
  - MEMORY IMPAIRMENT [None]
  - WEIGHT INCREASED [None]
